FAERS Safety Report 5793521-0 (Version None)
Quarter: 2008Q2

REPORT INFORMATION
  Report Type: 
  Country: None (occurrence: None)
  Receive Date: 20080627
  Receipt Date: 20080616
  Transmission Date: 20081010
  Serious: Yes (Hospitalization, Other)
  Sender: FDA-Public Use
  Company Number: FR-JNJFOC-20080304008

PATIENT
  Sex: Male

DRUGS (4)
  1. EPITOMAX [Suspect]
     Indication: EPILEPSY
     Route: 048
  2. DEPAKENE [Concomitant]
     Indication: DRUG USE FOR UNKNOWN INDICATION
  3. CLONAZEPAM [Concomitant]
     Indication: EPILEPSY
     Route: 065
  4. XANAX [Concomitant]
     Indication: ANXIETY
     Route: 048

REACTIONS (3)
  - BALANCE DISORDER [None]
  - FALL [None]
  - WRIST FRACTURE [None]
